FAERS Safety Report 21204662 (Version 3)
Quarter: 2022Q3

REPORT INFORMATION
  Report Type: Spontaneous
  Country: DE (occurrence: DE)
  Receive Date: 20220812
  Receipt Date: 20220914
  Transmission Date: 20221026
  Serious: Yes (Death, Other)
  Sender: FDA-Public Use
  Company Number: DE-JNJFOC-20220811388

PATIENT
  Age: 67 Year
  Sex: Male
  Weight: 118 kg

DRUGS (4)
  1. DEXAMETHASONE [Suspect]
     Active Substance: DEXAMETHASONE
     Indication: Plasma cell myeloma
     Dosage: MOST RECENT ADMINISTRATION WAS ON 10/JUN/2022
     Route: 065
     Dates: start: 20220525, end: 20220623
  2. DARZALEX [Suspect]
     Active Substance: DARATUMUMAB
     Indication: Plasma cell myeloma
     Dosage: MOST RECENT ADMINISTRATION WAS ON 09/JUN/2022
     Route: 058
     Dates: start: 20220525, end: 20220622
  3. CARFILZOMIB [Suspect]
     Active Substance: CARFILZOMIB
     Indication: Plasma cell myeloma
     Dosage: MOST RECENT ADMINISTRATION WAS ON 26/MAY/2022
     Route: 065
     Dates: start: 20220525, end: 20220623
  4. CARFILZOMIB [Suspect]
     Active Substance: CARFILZOMIB
     Dosage: MOST RECENT ADMINISTRATION WAS ON 10/JUN/2022
     Route: 065

REACTIONS (2)
  - Plasma cell myeloma [Fatal]
  - Thrombocytopenia [Not Recovered/Not Resolved]

NARRATIVE: CASE EVENT DATE: 20220616
